FAERS Safety Report 18111414 (Version 3)
Quarter: 2021Q1

REPORT INFORMATION
  Report Type: Spontaneous
  Country: US (occurrence: US)
  Receive Date: 20200805
  Receipt Date: 20210322
  Transmission Date: 20210419
  Serious: Yes (Other)
  Sender: FDA-Public Use
  Company Number: US-SA-2020SA201113

PATIENT
  Age: 43 Year
  Sex: Male
  Weight: 86.18 kg

DRUGS (4)
  1. POTASSIUM [Concomitant]
     Active Substance: POTASSIUM
  2. FISH OIL [Concomitant]
     Active Substance: FISH OIL
  3. DUPIXENT [Suspect]
     Active Substance: DUPILUMAB
     Indication: DERMATITIS ATOPIC
     Dosage: 300 MG, QOW
     Route: 058
     Dates: start: 202003
  4. VITAMIN D3 [Concomitant]
     Active Substance: CHOLECALCIFEROL

REACTIONS (11)
  - Dry skin [Unknown]
  - Rash [Unknown]
  - Skin exfoliation [Unknown]
  - Skin haemorrhage [Unknown]
  - Osteonecrosis [Unknown]
  - Blister [Unknown]
  - Nail disorder [Unknown]
  - Sensitive skin [Unknown]
  - Nail growth abnormal [Unknown]
  - Nail pitting [Unknown]
  - Pruritus [Unknown]

NARRATIVE: CASE EVENT DATE: 2020
